FAERS Safety Report 6118047-6 (Version None)
Quarter: 2009Q1

REPORT INFORMATION
  Report Type: 
  Country: None (occurrence: None)
  Receive Date: 20090314
  Receipt Date: 20090206
  Transmission Date: 20090719
  Serious: No
  Sender: FDA-Public Use
  Company Number: US-ABBOTT-09P-163-0502515-00

PATIENT
  Sex: Female
  Weight: 113.5 kg

DRUGS (3)
  1. HUMIRA [Suspect]
     Indication: COLITIS ULCERATIVE
     Dosage: MAINTENANCE DOSE
     Route: 058
     Dates: start: 20090206, end: 20090206
  2. HUMIRA [Suspect]
     Dosage: 160 MG LOADING DOSE
     Route: 058
     Dates: start: 20090109, end: 20090109
  3. HUMIRA [Suspect]
     Dosage: 80 MG
     Route: 058
     Dates: start: 20090123, end: 20090123

REACTIONS (1)
  - INCORRECT DOSE ADMINISTERED [None]
